FAERS Safety Report 23342676 (Version 3)
Quarter: 2024Q1

REPORT INFORMATION
  Report Type: Spontaneous
  Country: AT (occurrence: AT)
  Receive Date: 20231227
  Receipt Date: 20240326
  Transmission Date: 20240410
  Serious: Yes (Other)
  Sender: FDA-Public Use
  Company Number: AT-BRISTOL-MYERS SQUIBB COMPANY-2023-186013

PATIENT
  Age: 56 Year
  Sex: Male

DRUGS (8)
  1. NIVOLUMAB [Suspect]
     Active Substance: NIVOLUMAB
     Indication: Metastases to central nervous system
     Dates: start: 202106, end: 202203
  2. NIVOLUMAB [Suspect]
     Active Substance: NIVOLUMAB
     Indication: Renal cell carcinoma
  3. NIVOLUMAB [Suspect]
     Active Substance: NIVOLUMAB
  4. CABOMETYX [Suspect]
     Active Substance: CABOZANTINIB S-MALATE
     Indication: Metastases to central nervous system
     Dates: start: 202106, end: 202108
  5. CABOMETYX [Suspect]
     Active Substance: CABOZANTINIB S-MALATE
     Indication: Renal cell carcinoma
     Dates: start: 202110, end: 202208
  6. CABOMETYX [Suspect]
     Active Substance: CABOZANTINIB S-MALATE
  7. AXITINIB [Suspect]
     Active Substance: AXITINIB
     Indication: Renal cell carcinoma
  8. PEMBROLIZUMAB [Suspect]
     Active Substance: PEMBROLIZUMAB

REACTIONS (13)
  - Malignant neoplasm progression [Unknown]
  - Graves^ disease [Unknown]
  - Alanine aminotransferase increased [Unknown]
  - Aspartate aminotransferase increased [Unknown]
  - Rash [Unknown]
  - Transaminases increased [Unknown]
  - Eosinophilia [Unknown]
  - COVID-19 [Unknown]
  - Cough [Unknown]
  - Thyroglobulin increased [Unknown]
  - Thyroid stimulating immunoglobulin increased [Unknown]
  - Thyroid stimulating hormone deficiency [Unknown]
  - Anti-thyroid antibody increased [Unknown]

NARRATIVE: CASE EVENT DATE: 20210101
